FAERS Safety Report 12280951 (Version 1)
Quarter: 2016Q2

REPORT INFORMATION
  Report Type: Spontaneous
  Country: US (occurrence: US)
  Receive Date: 20160419
  Receipt Date: 20160419
  Transmission Date: 20160815
  Serious: Yes (Hospitalization)
  Sender: FDA-Public Use
  Company Number: US-UNITED THERAPEUTICS-UNT-2016-006070

PATIENT
  Age: 42 Year
  Sex: Female
  Weight: 151.84 kg

DRUGS (3)
  1. TRACLEER [Concomitant]
     Active Substance: BOSENTAN
     Indication: PRODUCT USED FOR UNKNOWN INDICATION
  2. ADCIRCA [Concomitant]
     Active Substance: TADALAFIL
     Indication: PRODUCT USED FOR UNKNOWN INDICATION
  3. REMODULIN [Suspect]
     Active Substance: TREPROSTINIL
     Indication: PULMONARY ARTERIAL HYPERTENSION
     Dosage: 0.0120 ?G/KG, CONTINUING
     Route: 041
     Dates: start: 20150415

REACTIONS (3)
  - Pulmonary arterial hypertension [Unknown]
  - Hypotension [Unknown]
  - Dialysis [Unknown]

NARRATIVE: CASE EVENT DATE: 201603
